FAERS Safety Report 4503428-4 (Version None)
Quarter: 2004Q4

REPORT INFORMATION
  Report Type: 
  Country: None (occurrence: None)
  Receive Date: 20041112
  Receipt Date: 20041029
  Transmission Date: 20050328
  Serious: Yes (Hospitalization)
  Sender: FDA-Public Use
  Company Number: 2004242342GB

PATIENT
  Sex: Male

DRUGS (1)
  1. DEPO-MEDRONE     (METHYLPREDNISOLONE) [Suspect]
     Dosage: 120 MG, CYCLIC

REACTIONS (1)
  - ADRENOCORTICAL INSUFFICIENCY ACUTE [None]
